FAERS Safety Report 25138987 (Version 1)
Quarter: 2025Q1

REPORT INFORMATION
  Report Type: Spontaneous
  Country: US (occurrence: US)
  Receive Date: 20250331
  Receipt Date: 20250331
  Transmission Date: 20250409
  Serious: No
  Sender: CSL BEHRING
  Company Number: US-BEH-2025199985

PATIENT
  Age: 46 Year
  Sex: Female

DRUGS (14)
  1. HIZENTRA [Suspect]
     Active Substance: HUMAN IMMUNOGLOBULIN G
     Indication: Immunodeficiency
     Dosage: 8 G, QW(8G/40ML)
     Route: 058
     Dates: start: 20240516
  2. ALBUTEROL [Concomitant]
     Active Substance: ALBUTEROL
  3. AMBIEN [Concomitant]
     Active Substance: ZOLPIDEM TARTRATE
  4. AZELASTINE [Concomitant]
     Active Substance: AZELASTINE
  5. CORTISONE [Concomitant]
     Active Substance: CORTISONE
  6. ESTRADIOL [Concomitant]
     Active Substance: ESTRADIOL
  7. GAMUNEX-C [Concomitant]
     Active Substance: HUMAN IMMUNOGLOBULIN G
  8. A-HYDROCORT [Concomitant]
     Active Substance: HYDROCORTISONE SODIUM SUCCINATE
  9. ONDANSETRON [Concomitant]
     Active Substance: ONDANSETRON
  10. PLAQUENIL [Concomitant]
     Active Substance: HYDROXYCHLOROQUINE SULFATE
  11. PROGESTERONE [Concomitant]
     Active Substance: PROGESTERONE
  12. PYRIDOSTIGMINE [Concomitant]
     Active Substance: PYRIDOSTIGMINE
  13. SYNTHROID [Concomitant]
     Active Substance: LEVOTHYROXINE SODIUM
  14. UBRELVY [Concomitant]
     Active Substance: UBROGEPANT

REACTIONS (2)
  - Implant site inflammation [Not Recovered/Not Resolved]
  - Weight increased [Not Recovered/Not Resolved]

NARRATIVE: CASE EVENT DATE: 20250101
